FAERS Safety Report 18734537 (Version 2)
Quarter: 2021Q1

REPORT INFORMATION
  Report Type: Spontaneous
  Country: US (occurrence: US)
  Receive Date: 20210113
  Receipt Date: 20210127
  Transmission Date: 20210419
  Serious: No
  Sender: FDA-Public Use
  Company Number: US-MYLANLABS-2021M1000817

PATIENT
  Sex: Female

DRUGS (2)
  1. XULANE [Suspect]
     Active Substance: ETHINYL ESTRADIOL\NORELGESTROMIN
     Indication: POLYCYSTIC OVARIES
     Dosage: UNK UNK, QD,
     Route: 062
  2. XULANE [Suspect]
     Active Substance: ETHINYL ESTRADIOL\NORELGESTROMIN
     Dosage: 1 DOSAGE FORM, Q3W
     Route: 062

REACTIONS (2)
  - Product use in unapproved indication [Unknown]
  - Product adhesion issue [Not Recovered/Not Resolved]
